FAERS Safety Report 22176916 (Version 1)
Quarter: 2023Q2

REPORT INFORMATION
  Report Type: Spontaneous
  Country: US (occurrence: GB)
  Receive Date: 20230405
  Receipt Date: 20230405
  Transmission Date: 20230721
  Serious: Yes (Hospitalization, Other)
  Sender: FDA-Public Use
  Company Number: GB-MYLANLABS-2023M1017678

PATIENT
  Age: 89 Year
  Sex: Male

DRUGS (20)
  1. SILDENAFIL CITRATE [Suspect]
     Active Substance: SILDENAFIL CITRATE
     Indication: Erectile dysfunction
     Dosage: UNK (50 MG QD)
     Route: 048
     Dates: start: 20200703, end: 20200807
  2. LANSOPRAZOLE [Suspect]
     Active Substance: LANSOPRAZOLE
     Dosage: 15 MG
     Route: 065
     Dates: start: 2019
  3. SPIRONOLACTONE [Suspect]
     Active Substance: SPIRONOLACTONE
     Dosage: 12.5 MG
     Route: 065
  4. ENTRESTO [Suspect]
     Active Substance: SACUBITRIL\VALSARTAN
     Indication: Cardiac amyloidosis
     Dosage: 1 DOSAGE FORM, QD, (49/51 MG)
     Route: 048
     Dates: start: 2019
  5. ENTRESTO [Suspect]
     Active Substance: SACUBITRIL\VALSARTAN
     Dosage: 1 DOSAGE FORM, BID,(24/26 MG)
     Route: 048
     Dates: start: 2019
  6. FUROSEMIDE [Suspect]
     Active Substance: FUROSEMIDE
     Indication: Cardiac amyloidosis
     Dosage: 20 MILLIGRAM, QD (ONCE A DAY)
     Route: 048
     Dates: start: 2019
  7. BUPRENORPHINE [Suspect]
     Active Substance: BUPRENORPHINE
     Indication: Osteoarthritis
     Dosage: 5 UG, WEEKLY
     Route: 061
     Dates: start: 2019
  8. FLUTICASONE [Suspect]
     Active Substance: FLUTICASONE
     Dosage: 55 UG
     Route: 065
  9. RIVAROXABAN [Suspect]
     Active Substance: RIVAROXABAN
     Indication: Atrial fibrillation
     Dosage: 15 MG
     Route: 065
  10. CLOPIDOGREL [Concomitant]
     Active Substance: CLOPIDOGREL BISULFATE
     Indication: Cerebrovascular accident
     Dosage: 75 MG, 1X/DAY
     Route: 048
     Dates: start: 2019
  11. CLOPIDOGREL [Concomitant]
     Active Substance: CLOPIDOGREL BISULFATE
     Dosage: 75 MG
     Route: 065
     Dates: start: 2019
  12. FLUTICASONE [Concomitant]
     Active Substance: FLUTICASONE
     Indication: Seasonal allergy
     Dosage: 55 MICROGRAM, PRN
     Route: 055
  13. LANSOPRAZOLE [Concomitant]
     Active Substance: LANSOPRAZOLE
     Dosage: 15 MG, 1X/DAY
     Route: 048
     Dates: start: 2019
  14. RIVAROXABAN [Concomitant]
     Active Substance: RIVAROXABAN
     Indication: Atrial fibrillation
     Dosage: 15 MG, 1X/DAY
     Route: 048
  15. ALFUZOSIN [Concomitant]
     Active Substance: ALFUZOSIN
     Indication: Benign prostatic hyperplasia
     Dosage: 10 MG, DAILY
     Route: 048
  16. SPIRONOLACTONE [Concomitant]
     Active Substance: SPIRONOLACTONE
     Dosage: 12.5 MG, 1X/DAY
     Route: 065
  17. SPIRONOLACTONE [Concomitant]
     Active Substance: SPIRONOLACTONE
     Dosage: 12.5 MG, 1X/DAY
     Route: 048
  18. ENTRESTO [Concomitant]
     Active Substance: SACUBITRIL\VALSARTAN
     Indication: Cardiac amyloidosis
     Dosage: 1 DF, 1X/DAY
     Route: 048
     Dates: start: 2019
  19. BUPRENORPHINE [Concomitant]
     Active Substance: BUPRENORPHINE
     Indication: Osteoarthritis
     Dosage: 5 UG
     Route: 061
     Dates: start: 2019
  20. FUROSEMIDE [Concomitant]
     Active Substance: FUROSEMIDE
     Indication: Cardiac amyloidosis
     Dosage: 20 MG
     Route: 048
     Dates: start: 2019

REACTIONS (11)
  - Orthostatic hypotension [Recovered/Resolved]
  - Loss of consciousness [Unknown]
  - Acute kidney injury [Unknown]
  - Hypotension [Unknown]
  - Syncope [Unknown]
  - Vitamin B12 deficiency [Unknown]
  - Drug ineffective [Unknown]
  - Product use in unapproved indication [Unknown]
  - Inappropriate schedule of product administration [Unknown]
  - Incorrect dose administered [Unknown]
  - Product quality issue [Unknown]

NARRATIVE: CASE EVENT DATE: 20200101
